FAERS Safety Report 9455103 (Version 1)
Quarter: 2013Q3

REPORT INFORMATION
  Report Type: Spontaneous
  Country: GB (occurrence: GB)
  Receive Date: 20130813
  Receipt Date: 20130813
  Transmission Date: 20140515
  Serious: Yes (Other)
  Sender: FDA-Public Use
  Company Number: GB-ASTRAZENECA-2013SE61229

PATIENT
  Age: 64 Year
  Sex: Female
  Weight: 74.4 kg

DRUGS (2)
  1. OMEPRAZOLE [Suspect]
     Indication: DYSPEPSIA
     Route: 048
     Dates: start: 20121030, end: 20121119
  2. GAVISCON [Concomitant]

REACTIONS (7)
  - Dry skin [Not Recovered/Not Resolved]
  - Skin tightness [Recovering/Resolving]
  - Sunburn [Recovered/Resolved with Sequelae]
  - Erythema [Recovering/Resolving]
  - Swelling face [Recovering/Resolving]
  - Pruritus [Recovering/Resolving]
  - Rash macular [Not Recovered/Not Resolved]
